FAERS Safety Report 6609493-2 (Version None)
Quarter: 2010Q1

REPORT INFORMATION
  Report Type: 
  Country: None (occurrence: None)
  Receive Date: 20100302
  Receipt Date: 20100219
  Transmission Date: 20100710
  Serious: Yes (Hospitalization)
  Sender: FDA-Public Use
  Company Number: US-JNJFOC-20100210288

PATIENT
  Age: 15 Month
  Sex: Male

DRUGS (2)
  1. TYLENOL (CAPLET) [Suspect]
     Route: 048
  2. TYLENOL (CAPLET) [Suspect]
     Indication: ANTIPYRESIS
     Route: 048

REACTIONS (3)
  - ACCIDENTAL OVERDOSE [None]
  - HEPATIC ENZYME INCREASED [None]
  - INCORRECT DRUG DOSAGE FORM ADMINISTERED [None]
